FAERS Safety Report 9471035 (Version 1)
Quarter: 2013Q3

REPORT INFORMATION
  Report Type: Spontaneous
  Country: CA (occurrence: None)
  Receive Date: 20130815
  Receipt Date: 20130815
  Transmission Date: 20140515
  Serious: Yes (Other)
  Sender: FDA-Public Use
  Company Number: 2013-2655

PATIENT
  Age: 29 Year
  Sex: Female

DRUGS (1)
  1. SOMATULINE [Suspect]
     Indication: HYPERPLASIA
     Dosage: (60 MG, 1 IN 28 D)
     Route: 058
     Dates: start: 20130320, end: 20130618

REACTIONS (2)
  - Pituitary tumour removal [None]
  - No therapeutic response [None]
